FAERS Safety Report 21077284 (Version 1)
Quarter: 2022Q3

REPORT INFORMATION
  Report Type: Spontaneous
  Country: AU (occurrence: US)
  Receive Date: 20220713
  Receipt Date: 20220713
  Transmission Date: 20221026
  Serious: No
  Sender: FDA-Public Use
  Company Number: AU-PFIZER INC-202200944477

PATIENT
  Age: 70 Year
  Sex: Female

DRUGS (7)
  1. PAXLOVID [Suspect]
     Active Substance: NIRMATRELVIR\RITONAVIR
     Indication: COVID-19 treatment
     Dosage: UNK
     Dates: start: 20220621, end: 20220625
  2. ESTRADIOL [Concomitant]
     Active Substance: ESTRADIOL
     Dosage: UNK
     Dates: start: 20220608, end: 20220703
  3. SOLICARE [Concomitant]
     Dosage: UNK
     Dates: start: 20220605, end: 20220616
  4. CANDESARTAN CILEXETIL [Concomitant]
     Active Substance: CANDESARTAN CILEXETIL
     Indication: Blood pressure abnormal
     Dosage: UNK
     Dates: start: 20220611, end: 20220709
  5. TEMAZEPAM [Concomitant]
     Active Substance: TEMAZEPAM
     Dosage: UNK
     Dates: start: 20220511, end: 20220703
  6. MELATONIN MR APOTEX [Concomitant]
     Dosage: UNK
     Dates: start: 20220616, end: 20220710
  7. ESTRIOL [Concomitant]
     Active Substance: ESTRIOL
     Dosage: UNK
     Dates: start: 20220615, end: 20220710

REACTIONS (2)
  - COVID-19 [Recovering/Resolving]
  - Disease recurrence [Recovering/Resolving]

NARRATIVE: CASE EVENT DATE: 20220630
